FAERS Safety Report 20472166 (Version 5)
Quarter: 2022Q1

REPORT INFORMATION
  Report Type: Report from Study
  Country: CN (occurrence: CN)
  Receive Date: 20220214
  Receipt Date: 20220314
  Transmission Date: 20220423
  Serious: Yes (Hospitalization, Other)
  Sender: FDA-Public Use
  Company Number: CN-BRISTOL-MYERS SQUIBB COMPANY-BMS-2022-018594

PATIENT
  Age: 39 Year
  Sex: Female
  Weight: 72 kg

DRUGS (15)
  1. NIVOLUMAB [Suspect]
     Active Substance: NIVOLUMAB
     Indication: Non-small cell lung cancer
     Dosage: 360 MILLIGRAM
     Route: 042
     Dates: start: 20210910
  2. IPILIMUMAB [Suspect]
     Active Substance: IPILIMUMAB
     Indication: Non-small cell lung cancer
     Dosage: 70 MILLIGRAM
     Route: 042
     Dates: start: 20211228
  3. CARBOPLATIN [Suspect]
     Active Substance: CARBOPLATIN
     Indication: Non-small cell lung cancer
     Dosage: 802 MILLIGRAM
     Route: 042
     Dates: start: 20210910
  4. PACLITAXEL [Suspect]
     Active Substance: PACLITAXEL
     Indication: Non-small cell lung cancer
     Dosage: 313.2 MILLIGRAM
     Route: 042
     Dates: start: 20210910
  5. CODEINE PHOSPHATE [Concomitant]
     Active Substance: CODEINE PHOSPHATE
     Indication: Product used for unknown indication
     Dosage: 60 MILLIGRAM, QD
     Route: 048
     Dates: start: 20220110
  6. METHYLPREDNISOLONE SODIUM SUCCINATE [Concomitant]
     Active Substance: METHYLPREDNISOLONE SODIUM SUCCINATE
     Indication: Product used for unknown indication
     Dosage: 80 MILLIGRAM, Q12H
     Route: 042
     Dates: start: 20220119, end: 20220124
  7. METHYLPREDNISOLONE SODIUM SUCCINATE [Concomitant]
     Active Substance: METHYLPREDNISOLONE SODIUM SUCCINATE
     Dosage: 40 MILLIGRAM, Q12H
     Route: 042
     Dates: start: 20220125, end: 20220130
  8. ACETYLCYSTEINE [Concomitant]
     Active Substance: ACETYLCYSTEINE
     Indication: Product used for unknown indication
     Dosage: 0.3 GRAM, Q12H
     Route: 055
     Dates: start: 20220117, end: 20220130
  9. IPRATROPIUM BROMIDE [Concomitant]
     Active Substance: IPRATROPIUM BROMIDE
     Indication: Product used for unknown indication
     Dosage: 0.5 GRAM, Q12H
     Route: 055
     Dates: start: 20220117, end: 20220130
  10. BUDESONIDE [Concomitant]
     Active Substance: BUDESONIDE
     Indication: Product used for unknown indication
     Dosage: 1 MILLIGRAM, Q12H
     Route: 055
     Dates: start: 20220117, end: 20220130
  11. TERBUTALINE SULFATE [Concomitant]
     Active Substance: TERBUTALINE SULFATE
     Indication: Product used for unknown indication
     Dosage: 5 MILLIGRAM, Q12H
     Route: 055
     Dates: start: 20220117, end: 20220130
  12. KANG FU XIN [Concomitant]
     Indication: Product used for unknown indication
     Dosage: 1 DOSAGE FORM= 10 UNITS NOS, 3 TIMES PER DAY
     Route: 048
     Dates: start: 20220113, end: 20220130
  13. COVID-19 VACCINE [Concomitant]
     Indication: Product used for unknown indication
     Dosage: UNK
     Route: 065
  14. PREDNISONE ACETATE [Concomitant]
     Active Substance: PREDNISONE ACETATE
     Indication: Radiation pneumonitis
     Dosage: 50 MILLIGRAM, QD
     Route: 048
     Dates: start: 20220131, end: 20220201
  15. PREDNISONE ACETATE [Concomitant]
     Active Substance: PREDNISONE ACETATE
     Dosage: 35 MILLIGRAM, QD
     Route: 048
     Dates: start: 20220202, end: 20220207

REACTIONS (1)
  - Embolism [Recovered/Resolved]

NARRATIVE: CASE EVENT DATE: 20220203
